FAERS Safety Report 20516257 (Version 2)
Quarter: 2022Q2

REPORT INFORMATION
  Report Type: Spontaneous
  Country: KR (occurrence: KR)
  Receive Date: 20220225
  Receipt Date: 20220523
  Transmission Date: 20220721
  Serious: Yes (Hospitalization, Other)
  Sender: FDA-Public Use
  Company Number: KR-SUN PHARMACEUTICAL INDUSTRIES LTD-2022RR-327897

PATIENT
  Age: 24 Year
  Sex: Female

DRUGS (8)
  1. AMISULPRIDE [Suspect]
     Active Substance: AMISULPRIDE
     Indication: Schizophreniform disorder
     Dosage: 100 MILLIGRAM, DAILY
     Route: 065
  2. AMISULPRIDE [Suspect]
     Active Substance: AMISULPRIDE
     Dosage: 1000 MILLIGRAM, DAILY
     Route: 065
  3. AMISULPRIDE [Suspect]
     Active Substance: AMISULPRIDE
     Dosage: 1200 MILLIGRAM, DAILY
     Route: 065
  4. ARIPIPRAZOLE [Suspect]
     Active Substance: ARIPIPRAZOLE
     Indication: Schizophreniform disorder
     Dosage: 10 MILLIGRAM, DAILY
     Route: 065
  5. ARIPIPRAZOLE [Suspect]
     Active Substance: ARIPIPRAZOLE
     Dosage: 30 MILLIGRAM, DAILY
     Route: 065
  6. QUETIAPINE [Suspect]
     Active Substance: QUETIAPINE
     Indication: Insomnia
     Dosage: 100-200MG/DAY
     Route: 065
  7. QUETIAPINE [Suspect]
     Active Substance: QUETIAPINE
     Dosage: 200 MILLIGRAM, DAILY
     Route: 065
  8. BENZTROPINE [Concomitant]
     Active Substance: BENZTROPINE
     Indication: Limb discomfort
     Dosage: 1 MILLIGRAM, DAILY
     Route: 065

REACTIONS (5)
  - Akathisia [Recovered/Resolved]
  - Withdrawal syndrome [Recovered/Resolved]
  - Drug ineffective [Unknown]
  - Hyperprolactinaemia [Recovered/Resolved]
  - Drug ineffective [Unknown]
